FAERS Safety Report 14112473 (Version 2)
Quarter: 2017Q4

REPORT INFORMATION
  Report Type: Report from Study
  Country: US (occurrence: US)
  Receive Date: 20171020
  Receipt Date: 20171030
  Transmission Date: 20180321
  Serious: Yes (Hospitalization, Other)
  Sender: FDA-Public Use
  Company Number: US-GILEAD-2017-0300258

PATIENT
  Age: 65 Year
  Sex: Female

DRUGS (1)
  1. RANOLAZINE. [Suspect]
     Active Substance: RANOLAZINE
     Indication: ANGINA PECTORIS
     Dosage: 500 MG, UNK
     Route: 048
     Dates: start: 201512

REACTIONS (11)
  - Angina pectoris [Unknown]
  - Myocardial infarction [Unknown]
  - Stent placement [Recovered/Resolved]
  - Vascular graft [Recovered/Resolved]
  - Small intestinal perforation [Unknown]
  - Muscle spasms [Unknown]
  - Product use issue [Unknown]
  - Irritable bowel syndrome [Unknown]
  - Blood pressure abnormal [Unknown]
  - Renal disorder [Unknown]
  - Emotional disorder [Unknown]

NARRATIVE: CASE EVENT DATE: 201702
